FAERS Safety Report 17821828 (Version 5)
Quarter: 2020Q2

REPORT INFORMATION
  Report Type: Report from Study
  Country: None (occurrence: ES)
  Receive Date: 20200525
  Receipt Date: 20200610
  Transmission Date: 20200714
  Serious: Yes (Death, Hospitalization, Other)
  Sender: FDA-Public Use
  Company Number: ES-ABBVIE-20K-144-3417230-00

PATIENT
  Age: 72 Year
  Sex: Male
  Weight: 100 kg

DRUGS (1)
  1. DUODOPA [Suspect]
     Active Substance: CARBIDOPA\LEVODOPA
     Indication: PRODUCT USED FOR UNKNOWN INDICATION
     Dosage: CONTINUOUS PERFUSION AT 20 ML/H
     Route: 050
     Dates: start: 20141022

REACTIONS (6)
  - Device dislocation [Recovered/Resolved]
  - Pneumonia [Fatal]
  - Dysphagia [Not Recovered/Not Resolved]
  - Off label use [Recovered/Resolved]
  - Wrong technique in device usage process [Unknown]
  - Urinary tract infection [Not Recovered/Not Resolved]

NARRATIVE: CASE EVENT DATE: 20200515
